FAERS Safety Report 7911512-8 (Version None)
Quarter: 2011Q4

REPORT INFORMATION
  Report Type: 
  Country: None (occurrence: None)
  Receive Date: 20111102
  Receipt Date: 20110902
  Transmission Date: 20120403
  Serious: No
  Sender: FDA-Public Use
  Company Number: 11-2288(0)

PATIENT
  Sex: Female

DRUGS (2)
  1. XEOMIN [Suspect]
     Indication: SKIN WRINKLING
     Dosage: (1 IN 1 TOTAL), (1 IN 1 TOTAL)
     Dates: start: 20110820, end: 20110820
  2. XEOMIN [Suspect]
     Indication: SKIN WRINKLING
     Dosage: (1 IN 1 TOTAL), (1 IN 1 TOTAL)
     Dates: start: 20110801, end: 20110801

REACTIONS (1)
  - DRUG INEFFECTIVE [None]
